FAERS Safety Report 25529300 (Version 2)
Quarter: 2025Q3

REPORT INFORMATION
  Report Type: Report from Study
  Country: US (occurrence: US)
  Receive Date: 20250708
  Receipt Date: 20250715
  Transmission Date: 20251021
  Serious: Yes (Hospitalization, Other)
  Sender: TAKEDA
  Company Number: US-TAKEDA-2025TUS050158

PATIENT
  Sex: Female
  Weight: 54 kg

DRUGS (9)
  1. VEDOLIZUMAB [Suspect]
     Active Substance: VEDOLIZUMAB
     Indication: Gastroenteritis
     Dosage: 108 MILLIGRAM, Q2WEEKS
  2. VEDOLIZUMAB [Suspect]
     Active Substance: VEDOLIZUMAB
     Indication: Colitis ulcerative
  3. VITAMIN D3 [Concomitant]
     Active Substance: CHOLECALCIFEROL
  4. IRON [Concomitant]
     Active Substance: IRON
  5. DOCUSATE CALCIUM [Concomitant]
     Active Substance: DOCUSATE CALCIUM
  6. BUDESONIDE [Concomitant]
     Active Substance: BUDESONIDE
     Dosage: 4 MILLIGRAM, QD
  7. BUDESONIDE [Concomitant]
     Active Substance: BUDESONIDE
     Dosage: 4 MILLIGRAM, QD
  8. RINVOQ [Concomitant]
     Active Substance: UPADACITINIB
  9. TREMFYA [Concomitant]
     Active Substance: GUSELKUMAB

REACTIONS (4)
  - Diarrhoea haemorrhagic [Unknown]
  - Abdominal pain [Unknown]
  - Nausea [Unknown]
  - Drug ineffective [Unknown]
